FAERS Safety Report 9752675 (Version 1)
Quarter: 2013Q4

REPORT INFORMATION
  Report Type: Spontaneous
  Country: US (occurrence: None)
  Receive Date: 20131212
  Receipt Date: 20131212
  Transmission Date: 20140711
  Serious: No
  Sender: FDA-Public Use
  Company Number: None

PATIENT
  Sex: Female

DRUGS (2)
  1. ARIMIDEX [Suspect]
     Indication: BREAST CANCER
     Route: 048
     Dates: start: 2009
  2. HYDROCODONE/ACETAMINOPHEN [Concomitant]

REACTIONS (4)
  - Body height decreased [None]
  - Abdominal pain upper [None]
  - Amnesia [None]
  - Bone pain [None]
